FAERS Safety Report 20192002 (Version 3)
Quarter: 2022Q1

REPORT INFORMATION
  Report Type: Report from Study
  Country: CO (occurrence: CO)
  Receive Date: 20211216
  Receipt Date: 20220328
  Transmission Date: 20220423
  Serious: Yes (Hospitalization)
  Sender: FDA-Public Use
  Company Number: CO-NOVARTISPH-NVSC2021CO284107

PATIENT
  Sex: Female

DRUGS (2)
  1. TASIGNA [Suspect]
     Active Substance: NILOTINIB
     Indication: Chronic myeloid leukaemia
     Dosage: UNK, QD
     Route: 048
  2. TASIGNA [Suspect]
     Active Substance: NILOTINIB
     Dosage: 300 MG, Q12H
     Route: 048

REACTIONS (11)
  - Inappropriate schedule of product administration [Unknown]
  - Ocular hyperaemia [Unknown]
  - Swelling of eyelid [Unknown]
  - Visual impairment [Unknown]
  - Eye disorder [Unknown]
  - Accident [Unknown]
  - Vomiting [Unknown]
  - Alopecia [Unknown]
  - Constipation [Unknown]
  - Swelling [Unknown]
  - Cough [Unknown]
